FAERS Safety Report 11282934 (Version 2)
Quarter: 2015Q3

REPORT INFORMATION
  Report Type: Spontaneous
  Country: AU (occurrence: AU)
  Receive Date: 20150720
  Receipt Date: 20150724
  Transmission Date: 20151125
  Serious: Yes (Other)
  Sender: FDA-Public Use
  Company Number: AU-JNJFOC-20150711790

PATIENT
  Age: 76 Year
  Sex: Male

DRUGS (3)
  1. TISSEEL [Suspect]
     Active Substance: FIBRINOGEN HUMAN\THROMBIN HUMAN
     Indication: PTERYGIUM OPERATION
     Route: 065
  2. HUMAN CLOTTABLE PROTEIN/HUMAN THROMBIN [Suspect]
     Active Substance: FIBRINOGEN HUMAN\THROMBIN HUMAN
     Indication: PTERYGIUM OPERATION
     Route: 065
  3. ALL OTHER THERAPEUTIC PRODUCT [Concomitant]
     Active Substance: UNSPECIFIED INGREDIENT
     Indication: PTERYGIUM OPERATION
     Route: 065

REACTIONS (4)
  - Inflammation [Unknown]
  - Corneoconjunctival intraepithelial neoplasia [Unknown]
  - Drug ineffective for unapproved indication [Unknown]
  - Off label use [Unknown]
